FAERS Safety Report 7755486-1 (Version None)
Quarter: 2011Q3

REPORT INFORMATION
  Report Type: 
  Country: None (occurrence: None)
  Receive Date: 20110916
  Receipt Date: 20110912
  Transmission Date: 20111222
  Serious: Yes (Other)
  Sender: FDA-Public Use
  Company Number: US-PFIZER INC-2011213015

PATIENT
  Sex: Female
  Weight: 74.83 kg

DRUGS (3)
  1. ACETYLSALICYLIC ACID [Concomitant]
     Dosage: 81 MG, DAILY
  2. NEURONTIN [Suspect]
     Indication: SPINAL COLUMN STENOSIS
     Dosage: 100 MG, 3X/DAY
     Dates: start: 20110819
  3. SIMVASTATIN [Concomitant]
     Indication: BLOOD CHOLESTEROL ABNORMAL
     Dosage: 20 MG, DAILY

REACTIONS (9)
  - DRUG INEFFECTIVE [None]
  - SURGERY [None]
  - VISION BLURRED [None]
  - DRY EYE [None]
  - ALOPECIA [None]
  - DIZZINESS [None]
  - SLEEP DISORDER [None]
  - IRRITABILITY [None]
  - AGITATION [None]
